FAERS Safety Report 4578278-3 (Version None)
Quarter: 2005Q1

REPORT INFORMATION
  Report Type: 
  Country: None (occurrence: None)
  Receive Date: 20050204
  Receipt Date: 20050204
  Transmission Date: 20050727
  Serious: Yes (Hospitalization)
  Sender: FDA-Public Use
  Company Number: None

PATIENT
  Age: 23 Year
  Sex: Male
  Weight: 146.0582 kg

DRUGS (6)
  1. ROSIGLITAZONE VS PLACEBO [Suspect]
     Indication: COLITIS ULCERATIVE
     Dosage: 4 MG BID ORALLY
     Route: 048
     Dates: start: 20050113, end: 20050201
  2. ROSIGLITAZONE VS PLACEBO [Suspect]
     Indication: CONDITION AGGRAVATED
     Dosage: 4 MG BID ORALLY
     Route: 048
     Dates: start: 20050113, end: 20050201
  3. PREDNISONE [Concomitant]
  4. ASACOL [Concomitant]
  5. DONNATOL [Concomitant]
  6. MULTI-VITAMIN [Concomitant]

REACTIONS (4)
  - ANOREXIA [None]
  - COLITIS ULCERATIVE [None]
  - CONDITION AGGRAVATED [None]
  - DIZZINESS POSTURAL [None]
